FAERS Safety Report 4590038-6 (Version None)
Quarter: 2005Q1

REPORT INFORMATION
  Report Type: 
  Country: None (occurrence: None)
  Receive Date: 20050224
  Receipt Date: 20050214
  Transmission Date: 20050727
  Serious: Yes (Hospitalization, Other)
  Sender: FDA-Public Use
  Company Number: GB-JNJFOC-20050203805

PATIENT
  Sex: Male
  Weight: 81 kg

DRUGS (9)
  1. REMICADE [Suspect]
     Indication: RHEUMATOID ARTHRITIS
     Route: 042
  2. METHOTREXATE [Concomitant]
  3. PREDNISOLONE [Concomitant]
  4. RAMIPRIL [Concomitant]
  5. FOLIC ACID [Concomitant]
  6. ASPIRIN [Concomitant]
  7. CELECOXIB [Concomitant]
  8. MIXTARD HUMAN 70/30 [Concomitant]
  9. MIXTARD HUMAN 70/30 [Concomitant]

REACTIONS (1)
  - NEPHROTIC SYNDROME [None]
